FAERS Safety Report 22852384 (Version 4)
Quarter: 2024Q3

REPORT INFORMATION
  Report Type: Report from Study
  Country: DE (occurrence: DE)
  Receive Date: 20230823
  Receipt Date: 20240702
  Transmission Date: 20241016
  Serious: Yes (Hospitalization, Other)
  Sender: NOVARTIS
  Company Number: DE-002147023-NVSC2023DE180661

PATIENT
  Age: 70 Year
  Sex: Male
  Weight: 71 kg

DRUGS (11)
  1. COSENTYX [Suspect]
     Active Substance: SECUKINUMAB
     Indication: Psoriasis
     Dosage: 150 MG, Q4W (ON 1 D/WK)
     Route: 058
     Dates: start: 20170925
  2. ASPIRIN [Concomitant]
     Active Substance: ASPIRIN
     Indication: Product used for unknown indication
     Dosage: 1 DOSAGE FORM, QD (0-1-0)
     Route: 048
  3. DAPAGLIFLOZIN [Concomitant]
     Active Substance: DAPAGLIFLOZIN
     Indication: Product used for unknown indication
     Dosage: 1 DOSAGE FORM, QD (1-0-0)
     Route: 048
  4. LEVOTHYROXINE SODIUM [Concomitant]
     Active Substance: LEVOTHYROXINE SODIUM
     Indication: Product used for unknown indication
     Dosage: 1 DOSAGE FORM (75 UG OR 0.075 MG), QD (1-0-0)
     Route: 048
  5. METFORMIN HYDROCHLORIDE [Concomitant]
     Active Substance: METFORMIN HYDROCHLORIDE
     Indication: Product used for unknown indication
     Dosage: 1 DOSAGE FORM, QD (1-0-0)
     Route: 048
  6. ESOMEPRAZOLE [Concomitant]
     Active Substance: ESOMEPRAZOLE
     Indication: Product used for unknown indication
     Dosage: 1 DOSAGE FORM, BID (1-0-1)
     Route: 048
  7. SIMVASTATIN [Concomitant]
     Active Substance: SIMVASTATIN
     Indication: Product used for unknown indication
     Dosage: 1 DOSAGE FORM, QD (0-0-1)
     Route: 048
  8. GLUCOPHAGE [Concomitant]
     Active Substance: METFORMIN HYDROCHLORIDE
     Indication: Product used for unknown indication
     Dosage: UNK, BID (1 - 0 - 1 - 0)
     Route: 048
  9. LEVOTHYROXINE SODIUM [Concomitant]
     Active Substance: LEVOTHYROXINE SODIUM
     Indication: Product used for unknown indication
     Dosage: 1 DOSAGE FORM, QD (PAUSED UNTIL DIAGNOSIS ON 13/09/2022)
     Route: 048
  10. METAMIZOLE [Concomitant]
     Active Substance: METAMIZOLE
     Indication: Pain
     Dosage: UNK, TID (30 - 30 - 30 - 30)
     Route: 048
  11. ENOXAPARIN SODIUM [Concomitant]
     Active Substance: ENOXAPARIN SODIUM
     Indication: Product used for unknown indication
     Dosage: UNK, QD (UP TO AND INCLUDING 15/09/2022)
     Route: 058

REACTIONS (35)
  - Lymphadenopathy [Recovered/Resolved]
  - Gallbladder polyp [Recovered/Resolved]
  - Inguinal hernia [Recovered/Resolved]
  - Groin pain [Recovered/Resolved]
  - Weight decreased [Recovered/Resolved]
  - Sarcoidosis [Unknown]
  - Tuberculosis [Unknown]
  - Pancreatitis chronic [Recovered/Resolved]
  - Hypothyroidism [Not Recovered/Not Resolved]
  - Hepatic cirrhosis [Unknown]
  - Pancreatitis [Unknown]
  - Type 2 diabetes mellitus [Unknown]
  - Melaena [Unknown]
  - Beta 2 microglobulin increased [Unknown]
  - Blood chromogranin A increased [Unknown]
  - Hepatic steatosis [Not Recovered/Not Resolved]
  - Benign prostatic hyperplasia [Not Recovered/Not Resolved]
  - Hypertension [Unknown]
  - Hyperlipidaemia [Unknown]
  - Tobacco abuse [Not Recovered/Not Resolved]
  - Obesity [Unknown]
  - Obstructive sleep apnoea syndrome [Not Recovered/Not Resolved]
  - Appetite disorder [Unknown]
  - Fatigue [Unknown]
  - Vomiting [Unknown]
  - Gastrointestinal motility disorder [Unknown]
  - Granuloma [Unknown]
  - Hepatomegaly [Unknown]
  - Adenoma benign [Unknown]
  - Wound [Unknown]
  - Coronary artery disease [Not Recovered/Not Resolved]
  - Adrenal mass [Not Recovered/Not Resolved]
  - Haemorrhoids [Not Recovered/Not Resolved]
  - Gallbladder polyp [Not Recovered/Not Resolved]
  - Spinal osteoarthritis [Not Recovered/Not Resolved]

NARRATIVE: CASE EVENT DATE: 20220501
